FAERS Safety Report 25535454 (Version 1)
Quarter: 2025Q3

REPORT INFORMATION
  Report Type: Spontaneous
  Country: US (occurrence: US)
  Receive Date: 20250709
  Receipt Date: 20250709
  Transmission Date: 20251021
  Serious: Yes (Hospitalization, Other)
  Sender: AMGEN
  Company Number: US-AMGEN-USASP2025130450

PATIENT
  Age: 22 Year
  Weight: 80 kg

DRUGS (3)
  1. RITUXIMAB [Suspect]
     Active Substance: RITUXIMAB
     Indication: Transplant rejection
     Route: 065
  2. Immunoglobulin [Concomitant]
     Route: 040
  3. TOLODODEKIN ALFA [Concomitant]
     Active Substance: TOLODODEKIN ALFA

REACTIONS (6)
  - Gastroenteritis viral [Unknown]
  - Diabetic ketoacidosis [Unknown]
  - Rash [Unknown]
  - Off label use [Unknown]
  - Flushing [Unknown]
  - Headache [Recovering/Resolving]
